FAERS Safety Report 17020218 (Version 2)
Quarter: 2019Q4

REPORT INFORMATION
  Report Type: Spontaneous
  Country: JP (occurrence: JP)
  Receive Date: 20191112
  Receipt Date: 20191125
  Transmission Date: 20200122
  Serious: Yes (Other)
  Sender: FDA-Public Use
  Company Number: JP-ROCHE-2466396

PATIENT
  Age: 75 Year
  Sex: Female
  Weight: 37 kg

DRUGS (9)
  1. METGLUCO [Concomitant]
     Active Substance: METFORMIN HYDROCHLORIDE
     Dosage: DOSAGE IS UNCERTAIN.
     Route: 065
     Dates: start: 20160307
  2. ACTOS [Concomitant]
     Active Substance: PIOGLITAZONE HYDROCHLORIDE
     Dosage: DOSAGE IS UNCERTAIN.
     Route: 065
     Dates: start: 20180908
  3. ACTEMRA [Suspect]
     Active Substance: TOCILIZUMAB
     Indication: RHEUMATOID ARTHRITIS
     Route: 058
     Dates: start: 20161112
  4. ACTEMRA [Suspect]
     Active Substance: TOCILIZUMAB
     Route: 058
     Dates: end: 20191025
  5. CANAGLU [Concomitant]
     Active Substance: CANAGLIFLOZIN
     Dosage: DOSAGE IS UNCERTAIN.
     Route: 065
     Dates: start: 20180210
  6. LIVALO [Concomitant]
     Active Substance: PITAVASTATIN CALCIUM
     Dosage: DOSAGE IS UNCERTAIN.
     Route: 065
     Dates: start: 20050209
  7. EQUA [Concomitant]
     Active Substance: VILDAGLIPTIN
     Dosage: DOSAGE IS UNCERTAIN.
     Route: 065
     Dates: start: 20160208
  8. RIMATIL [Concomitant]
     Active Substance: BUCILLAMINE
     Dosage: DOSAGE IS UNCERTAIN.
     Route: 065
  9. MICARDIS [Concomitant]
     Active Substance: TELMISARTAN
     Dosage: DOSAGE IS UNCERTAIN.
     Route: 065
     Dates: start: 20181206

REACTIONS (2)
  - Pericardial effusion [Not Recovered/Not Resolved]
  - Cardiomegaly [Unknown]

NARRATIVE: CASE EVENT DATE: 20190330
